FAERS Safety Report 19840228 (Version 1)
Quarter: 2021Q3

REPORT INFORMATION
  Report Type: Spontaneous
  Country: US (occurrence: US)
  Receive Date: 20210915
  Receipt Date: 20210915
  Transmission Date: 20211014
  Serious: Yes (Hospitalization)
  Sender: FDA-Public Use
  Company Number: None

PATIENT
  Age: 63 Year
  Sex: Male

DRUGS (9)
  1. ALBUTEROL SULFATE HFA [Suspect]
     Active Substance: ALBUTEROL SULFATE
     Indication: RESPIRATORY DISORDER
     Dosage: ?          OTHER DOSE:2 PUFFS ;OTHER FREQUENCY:EVERY 4 HOURS ;?
     Route: 055
     Dates: start: 20210710
  2. ROSUVASTATIN. [Suspect]
     Active Substance: ROSUVASTATIN
  3. FAMOTIDINE. [Suspect]
     Active Substance: FAMOTIDINE
  4. HYDROXYCHLOR [Suspect]
     Active Substance: HYDROXYCHLOROQUINE
  5. ALBUTEROL SULFATE HFA [Suspect]
     Active Substance: ALBUTEROL SULFATE
     Indication: CARDIOVASCULAR DISORDER
     Dosage: ?          OTHER DOSE:2 PUFFS ;OTHER FREQUENCY:EVERY 4 HOURS ;?
     Route: 055
     Dates: start: 20210710
  6. BREO ELLIPTA [Suspect]
     Active Substance: FLUTICASONE FUROATE\VILANTEROL TRIFENATATE
     Indication: DYSPNOEA
     Dosage: ?          OTHER DOSE:1 PUFF;?
     Route: 055
     Dates: start: 20210710
  7. LOSARTAN POT [Suspect]
     Active Substance: LOSARTAN POTASSIUM
  8. AMLODIPINE [Suspect]
     Active Substance: AMLODIPINE BESYLATE
  9. MYCOPHENOLAT [Suspect]
     Active Substance: MYCOPHENOLATE MOFETIL

REACTIONS (1)
  - SARS-CoV-2 test positive [None]

NARRATIVE: CASE EVENT DATE: 20210907
